FAERS Safety Report 10430781 (Version 1)
Quarter: 2014Q3

REPORT INFORMATION
  Report Type: Spontaneous
  Country: IT (occurrence: IT)
  Receive Date: 20140904
  Receipt Date: 20140904
  Transmission Date: 20150326
  Serious: Yes (Hospitalization)
  Sender: FDA-Public Use
  Company Number: IT-TEVA-504762ISR

PATIENT
  Age: 53 Year
  Sex: Female

DRUGS (2)
  1. SERTRALINE [Suspect]
     Active Substance: SERTRALINE HYDROCHLORIDE
     Indication: INTENTIONAL SELF-INJURY
     Dosage: 36 DF TOTAL
     Route: 048
     Dates: start: 20131009, end: 20131010
  2. EN - 1 MG/ML GOCCE ORALI, SOLUZIONE - ABBOTT S.R.L. [Suspect]
     Active Substance: DELORAZEPAM
     Indication: INTENTIONAL SELF-INJURY
     Route: 048
     Dates: start: 20131009, end: 20131010

REACTIONS (4)
  - Intentional self-injury [Recovering/Resolving]
  - Drug abuse [Unknown]
  - Dysarthria [Recovering/Resolving]
  - Sopor [Recovering/Resolving]

NARRATIVE: CASE EVENT DATE: 20131010
